FAERS Safety Report 7298753-0 (Version None)
Quarter: 2011Q1

REPORT INFORMATION
  Report Type: 
  Country: None (occurrence: None)
  Receive Date: 20110217
  Receipt Date: 20110210
  Transmission Date: 20110831
  Serious: Yes (Hospitalization)
  Sender: FDA-Public Use
  Company Number: JP-ROCHE-714111

PATIENT
  Sex: Female
  Weight: 60 kg

DRUGS (5)
  1. COPEGUS [Suspect]
     Indication: HEPATITIS C
     Route: 048
     Dates: start: 20090819, end: 20100217
  2. THYRADIN S [Concomitant]
     Route: 048
     Dates: start: 19970101
  3. ESTRADIOL [Concomitant]
     Dosage: DRUG: ESTRANA, DOSE FORM: TAPE.
     Route: 003
  4. PEGASYS [Suspect]
     Indication: HEPATITIS C
     Route: 058
     Dates: start: 20090819, end: 20100203
  5. MAINTATE [Concomitant]
     Route: 048

REACTIONS (2)
  - STILL'S DISEASE ADULT ONSET [None]
  - DISSEMINATED INTRAVASCULAR COAGULATION [None]
